FAERS Safety Report 19164809 (Version 1)
Quarter: 2021Q2

REPORT INFORMATION
  Report Type: Spontaneous
  Country: US (occurrence: US)
  Receive Date: 20210421
  Receipt Date: 20210421
  Transmission Date: 20210717
  Serious: No
  Sender: FDA-Public Use
  Company Number: US-JUBILANT PHARMA LTD-2021US000257

PATIENT
  Age: 50 Year
  Sex: Male

DRUGS (3)
  1. AMLODINE                           /00972402/ [Concomitant]
     Indication: PRODUCT USED FOR UNKNOWN INDICATION
     Dosage: UNK
  2. HICON [Suspect]
     Active Substance: SODIUM IODIDE I-131
     Indication: PAPILLARY THYROID CANCER
     Dosage: 162 MCI, SINGLE DOSE
     Dates: start: 20210315, end: 20210315
  3. BENZYLHYDROCHLORTHIAZIDE [Concomitant]
     Active Substance: BENZYLHYDROCHLOROTHIAZIDE
     Indication: PRODUCT USED FOR UNKNOWN INDICATION
     Dosage: UNK

REACTIONS (2)
  - Neck pain [Recovered/Resolved]
  - Swelling [Recovered/Resolved]

NARRATIVE: CASE EVENT DATE: 20210315
